FAERS Safety Report 21839861 (Version 1)
Quarter: 2023Q1

REPORT INFORMATION
  Report Type: Spontaneous
  Country: CN (occurrence: CN)
  Receive Date: 20230110
  Receipt Date: 20230110
  Transmission Date: 20230418
  Serious: Yes (Other)
  Sender: FDA-Public Use
  Company Number: CN-BoehringerIngelheim-2023-BI-210856

PATIENT
  Age: 61 Year
  Sex: Male

DRUGS (2)
  1. DABIGATRAN [Suspect]
     Active Substance: DABIGATRAN
     Indication: Venous thrombosis
     Dosage: 110 MG BID FOR 3 DAYS, AND THEN ORAL DABIGATRAN ONLY
     Route: 048
     Dates: start: 2015, end: 201703
  2. low-molecular-weight heparin (LMWH) [Concomitant]

REACTIONS (8)
  - Status epilepticus [Recovered/Resolved]
  - Haemorrhagic infarction [Recovered/Resolved]
  - Cerebral venous sinus thrombosis [Recovered/Resolved]
  - Transverse sinus thrombosis [Recovered/Resolved]
  - Sigmoid sinus thrombosis [Recovered/Resolved]
  - Superior sagittal sinus thrombosis [Recovered/Resolved]
  - Gene mutation [Recovered/Resolved]
  - Antithrombin III deficiency [Recovered/Resolved]
